FAERS Safety Report 14240967 (Version 3)
Quarter: 2018Q1

REPORT INFORMATION
  Report Type: Spontaneous
  Country: BR (occurrence: BR)
  Receive Date: 20171130
  Receipt Date: 20180313
  Transmission Date: 20180508
  Serious: Yes (Hospitalization)
  Sender: FDA-Public Use
  Company Number: PHHY2017BR168133

PATIENT
  Sex: Female
  Weight: 69 kg

DRUGS (1)
  1. DIOVAN HCT [Suspect]
     Active Substance: HYDROCHLOROTHIAZIDE\VALSARTAN
     Indication: HYPERTENSION
     Dosage: 2 DF, QD
     Route: 048
     Dates: start: 20171106

REACTIONS (4)
  - Diabetes mellitus [Recovering/Resolving]
  - Product packaging quantity issue [Unknown]
  - Hypertension [Recovering/Resolving]
  - Reflux gastritis [Unknown]
